FAERS Safety Report 7584256-2 (Version None)
Quarter: 2011Q2

REPORT INFORMATION
  Report Type: 
  Country: None (occurrence: None)
  Receive Date: 20110630
  Receipt Date: 20110617
  Transmission Date: 20111010
  Serious: Yes (Other)
  Sender: FDA-Public Use
  Company Number: CA-JNJFOC-20110612829

PATIENT

DRUGS (5)
  1. NAPROXEN [Concomitant]
     Indication: DISCOMFORT
  2. DICLECTIN [Concomitant]
     Indication: NAUSEA
     Dates: start: 20100901
  3. REMICADE [Suspect]
     Indication: DRUG EXPOSURE DURING PREGNANCY
     Route: 042
     Dates: start: 20080101, end: 20100701
  4. FOLIC ACID [Concomitant]
     Indication: PREGNANCY
     Dates: start: 20100901
  5. PRENATAL VITAMINS [Concomitant]
     Indication: PREGNANCY
     Dates: start: 20100901

REACTIONS (1)
  - PREMATURE BABY [None]
